FAERS Safety Report 8899519 (Version 1)
Quarter: 2012Q4

REPORT INFORMATION
  Report Type: 
  Country: SE (occurrence: SE)
  Receive Date: 20121109
  Receipt Date: 20121109
  Transmission Date: 20130627
  Serious: Yes (Hospitalization)
  Sender: FDA-Public Use
  Company Number: SE-PFIZER INC-2012275054

PATIENT
  Age: 42 Year
  Sex: Female
  Weight: 78 kg

DRUGS (10)
  1. GENOTROPIN [Suspect]
     Indication: GROWTH HORMONE DEFICIENCY
     Dosage: 0.8 mg, 1x/day, 7 injections/week
     Route: 058
     Dates: start: 19990122
  2. PROGYNON [Concomitant]
     Indication: LUTEINISING HORMONE DEFICIENCY
     Dosage: UNK
     Dates: start: 19860101
  3. PROGYNON [Concomitant]
     Indication: FOLLICLE-STIMULATING HORMONE DEFICIENCY
  4. PROGYNON [Concomitant]
     Indication: HYPOGONADISM FEMALE
  5. GESTAPURAN [Concomitant]
     Indication: LUTEINISING HORMONE DEFICIENCY
     Dosage: UNK
     Dates: start: 19860101
  6. GESTAPURAN [Concomitant]
     Indication: FOLLICLE-STIMULATING HORMONE DEFICIENCY
  7. GESTAPURAN [Concomitant]
     Indication: HYPOGONADISM FEMALE
  8. CORTISONE ACETATE [Concomitant]
     Indication: BLOOD CORTICOTROPHIN DECREASED
     Dosage: UNK
     Dates: start: 19950501
  9. LEVOTHYROXINE [Concomitant]
     Indication: BLOOD THYROID STIMULATING HORMONE DECREASED
     Dosage: UNK
     Dates: start: 19950501
  10. LEVOTHYROXINE [Concomitant]
     Indication: PRIMARY HYPOTHYROIDISM

REACTIONS (1)
  - Malaise [Unknown]
